FAERS Safety Report 7677622-8 (Version None)
Quarter: 2011Q3

REPORT INFORMATION
  Report Type: 
  Country: None (occurrence: None)
  Receive Date: 20110811
  Receipt Date: 20110804
  Transmission Date: 20111222
  Serious: Yes (Other)
  Sender: FDA-Public Use
  Company Number: AU-ROCHE-788986

PATIENT
  Sex: Female

DRUGS (2)
  1. ACTEMRA [Suspect]
     Indication: RHEUMATOID ARTHRITIS
     Dosage: FORM: INFUSION. VOLUME OF INFUSION GIVEN: 800 MG IN 100 ML
     Route: 065
     Dates: start: 20110705
  2. ACTEMRA [Suspect]
     Dosage: FORM: INFUSION. VOLUME OF INFUSION GIVEN: 800 MG IN 100 ML
     Route: 065
     Dates: start: 20110801

REACTIONS (5)
  - BLOOD PRESSURE INCREASED [None]
  - ABDOMINAL PAIN [None]
  - ASTHMA [None]
  - HEADACHE [None]
  - CONSTIPATION [None]
